FAERS Safety Report 5847457-7 (Version None)
Quarter: 2008Q3

REPORT INFORMATION
  Report Type: 
  Country: None (occurrence: None)
  Receive Date: 20080815
  Receipt Date: 20080806
  Transmission Date: 20090109
  Serious: Yes (Death, Hospitalization)
  Sender: FDA-Public Use
  Company Number: US-AMGEN-US300047

PATIENT
  Sex: Female

DRUGS (7)
  1. ENBREL [Suspect]
     Indication: RHEUMATOID ARTHRITIS
     Route: 058
     Dates: start: 20030305, end: 20060606
  2. METHOTREXATE [Suspect]
     Route: 048
     Dates: start: 20000331, end: 20060606
  3. ORUVAIL [Concomitant]
     Route: 065
     Dates: start: 19940708, end: 20060801
  4. PREDNISONE TAB [Concomitant]
     Route: 065
     Dates: start: 19901019, end: 20060801
  5. DIGITEK [Concomitant]
     Route: 065
     Dates: start: 20020422, end: 20060801
  6. MONOPRIL [Concomitant]
     Route: 065
     Dates: start: 20020423
  7. TOPROL-XL [Concomitant]
     Route: 065
     Dates: start: 20030620, end: 20060801

REACTIONS (1)
  - EXTRADURAL ABSCESS [None]
